FAERS Safety Report 21668213 (Version 1)
Quarter: 2022Q4

REPORT INFORMATION
  Report Type: Spontaneous
  Country: US (occurrence: None)
  Receive Date: 20221130
  Receipt Date: 20221130
  Transmission Date: 20230113
  Serious: No
  Sender: FDA-Public Use
  Company Number: None

PATIENT
  Age: 32 Year
  Sex: Female

DRUGS (1)
  1. ATOMOXETINE HYDROCHLORIDE [Suspect]
     Active Substance: ATOMOXETINE HYDROCHLORIDE
     Dates: start: 20221127, end: 20221129

REACTIONS (7)
  - Adverse drug reaction [None]
  - Disturbance in attention [None]
  - Dizziness [None]
  - Dry eye [None]
  - Dysuria [None]
  - Decreased appetite [None]
  - Painful ejaculation [None]

NARRATIVE: CASE EVENT DATE: 20221127
